FAERS Safety Report 8533814-7 (Version None)
Quarter: 2012Q3

REPORT INFORMATION
  Report Type: 
  Country: None (occurrence: None)
  Receive Date: 20120724
  Receipt Date: 20120716
  Transmission Date: 20120928
  Serious: Yes (Other)
  Sender: FDA-Public Use
  Company Number: US-VERTEX PHARMACEUTICALS INC.-AE-2012-008566

PATIENT
  Sex: Female
  Weight: 114.41 kg

DRUGS (5)
  1. INCIVEK [Suspect]
     Indication: HEPATITIS C
     Route: 048
     Dates: start: 20120531, end: 20120619
  2. COPEGUS [Concomitant]
     Indication: HEPATITIS C
     Route: 048
     Dates: start: 20120531
  3. PROZAC [Concomitant]
     Indication: DEPRESSION
     Route: 048
  4. PEGASYS [Concomitant]
     Indication: HEPATITIS C
     Route: 058
     Dates: start: 20120531
  5. PROMETHAZINE [Concomitant]
     Route: 048

REACTIONS (7)
  - STOMATITIS [None]
  - SKIN EXFOLIATION [None]
  - HAEMORRHOIDS [None]
  - RASH GENERALISED [None]
  - PRURITUS [None]
  - MOUTH ULCERATION [None]
  - OROPHARYNGEAL PAIN [None]
